FAERS Safety Report 7424710-7 (Version None)
Quarter: 2011Q2

REPORT INFORMATION
  Report Type: 
  Country: None (occurrence: None)
  Receive Date: 20110419
  Receipt Date: 20110407
  Transmission Date: 20111010
  Serious: Yes (Other)
  Sender: FDA-Public Use
  Company Number: PHHY2010CA67504

PATIENT
  Sex: Female

DRUGS (12)
  1. METHOTREXATE [Concomitant]
  2. ARAVA [Concomitant]
  3. CALCIUM [Concomitant]
  4. FOLIC ACID [Concomitant]
  5. LORAZEPAM [Concomitant]
  6. VITAMIN D [Concomitant]
  7. ACLASTA [Suspect]
     Indication: OSTEOPOROSIS
     Dosage: 5 MG
     Route: 042
     Dates: start: 20091120
  8. OXYCODONE [Concomitant]
  9. PRILOSEC [Concomitant]
  10. BETAMETHASONE [Concomitant]
  11. HYDROCHLOROTHIAZIDE [Concomitant]
  12. VITAMIN B-12 [Concomitant]

REACTIONS (3)
  - TOOTHACHE [None]
  - GINGIVAL PAIN [None]
  - DENTAL CARIES [None]
